FAERS Safety Report 4344287-2 (Version None)
Quarter: 2004Q2

REPORT INFORMATION
  Report Type: 
  Country: None (occurrence: None)
  Receive Date: 20040420
  Receipt Date: 20040409
  Transmission Date: 20050107
  Serious: Yes (Hospitalization)
  Sender: FDA-Public Use
  Company Number: FR-JNJFOC-20040203266

PATIENT
  Age: 31 Year
  Sex: Male
  Weight: 73 kg

DRUGS (6)
  1. RISPERDAL [Suspect]
     Indication: ABNORMAL BEHAVIOUR
     Dosage: 3 MG, 1 IN  1 DAY, ORAL
     Route: 048
     Dates: start: 20040121, end: 20040204
  2. ZOLOFT [Concomitant]
  3. VALIUM [Concomitant]
  4. AOTAL (ACAMPROSATE) [Concomitant]
  5. MEPRONIZINE (MEPRONIZINE) [Concomitant]
  6. DEPAKOTE [Concomitant]

REACTIONS (5)
  - ALANINE AMINOTRANSFERASE INCREASED [None]
  - ASPARTATE AMINOTRANSFERASE INCREASED [None]
  - BLOOD BILIRUBIN INCREASED [None]
  - CRYPTOGENIC ORGANIZING PNEUMONIA [None]
  - PULMONARY EMBOLISM [None]
